FAERS Safety Report 15485427 (Version 1)
Quarter: 2018Q4

REPORT INFORMATION
  Report Type: Spontaneous
  Country: US (occurrence: US)
  Receive Date: 20181010
  Receipt Date: 20181010
  Transmission Date: 20190205
  Serious: No
  Sender: FDA-Public Use
  Company Number: US-ROCHE-2168730

PATIENT
  Sex: Male

DRUGS (1)
  1. ESBRIET [Suspect]
     Active Substance: PIRFENIDONE
     Indication: IDIOPATHIC PULMONARY FIBROSIS
     Dosage: 3 TABLETS WITH  2 MEALS PER DAY; ONGOING: YES
     Route: 048
     Dates: start: 201805

REACTIONS (4)
  - Pruritus [Unknown]
  - Insomnia [Unknown]
  - Dyspnoea [Unknown]
  - Photosensitivity reaction [Unknown]
